FAERS Safety Report 8610896-5 (Version None)
Quarter: 2012Q3

REPORT INFORMATION
  Report Type: 
  Country: None (occurrence: None)
  Receive Date: 20120808
  Receipt Date: 20120725
  Transmission Date: 20120928
  Serious: Yes (Death, Other)
  Sender: FDA-Public Use
  Company Number: 2012MA009128

PATIENT
  Age: 55 Year
  Sex: Male
  Weight: 68.0396 kg

DRUGS (6)
  1. KADIAN [Suspect]
     Indication: INTENTIONAL DRUG MISUSE
     Dosage: PO
     Route: 048
  2. SKELETAL MUSCLE RELAXANT [Suspect]
     Dosage: PO
     Route: 048
  3. ACETAMINOPHEN AND HYDROCODONE [Suspect]
     Dosage: PO
     Route: 048
  4. CARISOPRODOL [Suspect]
  5. MEPROBAMATE [Suspect]
  6. ETHANOL [Suspect]
     Dosage: PO
     Route: 048

REACTIONS (5)
  - EXCORIATION [None]
  - WOUND [None]
  - ACCIDENTAL DEATH [None]
  - UNRESPONSIVE TO STIMULI [None]
  - TOXICITY TO VARIOUS AGENTS [None]
